FAERS Safety Report 17360151 (Version 1)
Quarter: 2020Q1

REPORT INFORMATION
  Report Type: Spontaneous
  Country: ES (occurrence: ES)
  Receive Date: 20200203
  Receipt Date: 20200203
  Transmission Date: 20200409
  Serious: Yes (Other)
  Sender: FDA-Public Use
  Company Number: ES-TEVA-2020-ES-1177538

PATIENT
  Age: 60 Year
  Sex: Female

DRUGS (1)
  1. CARBOPLATINO TEVA 10 MG/ML CONCENTRADO PARA SOLUCION PARA PERFUSION , [Suspect]
     Active Substance: CARBOPLATIN
     Indication: OVARIAN CANCER
     Dosage: CARBOPLATINO AUC5 C / 21 DAYS
     Route: 041
     Dates: start: 20200110, end: 20200110

REACTIONS (1)
  - Hypotension [Recovered/Resolved]

NARRATIVE: CASE EVENT DATE: 20200110
